FAERS Safety Report 19416364 (Version 1)
Quarter: 2021Q2

REPORT INFORMATION
  Report Type: Spontaneous
  Country: US (occurrence: US)
  Receive Date: 20210615
  Receipt Date: 20210615
  Transmission Date: 20210717
  Serious: No
  Sender: FDA-Public Use
  Company Number: US-ALLERGAN-2112596US

PATIENT
  Age: 38 Year
  Sex: Female
  Weight: 90.7 kg

DRUGS (4)
  1. KYBELLA [Suspect]
     Active Substance: DEOXYCHOLIC ACID
     Dosage: UNK UNK, SINGLE
     Dates: start: 20201224, end: 20201224
  2. MIRENA [Concomitant]
     Active Substance: LEVONORGESTREL
  3. KYBELLA [Suspect]
     Active Substance: DEOXYCHOLIC ACID
     Dosage: UNK UNK, SINGLE
     Dates: start: 20201102, end: 20201102
  4. KYBELLA [Suspect]
     Active Substance: DEOXYCHOLIC ACID
     Indication: PRODUCT USED FOR UNKNOWN INDICATION
     Dosage: UNK UNK, SINGLE
     Dates: start: 20210216, end: 20210216

REACTIONS (1)
  - Drug ineffective [Unknown]
